FAERS Safety Report 5357242-0 (Version None)
Quarter: 2007Q2

REPORT INFORMATION
  Report Type: 
  Country: None (occurrence: None)
  Receive Date: 20070614
  Receipt Date: 20070613
  Transmission Date: 20071010
  Serious: Yes (Other)
  Sender: FDA-Public Use
  Company Number: B0473811A

PATIENT
  Age: 73 Year
  Sex: Female

DRUGS (1)
  1. PANADOL ADULT MINI CAPS [Suspect]
     Indication: OSTEOARTHRITIS
     Route: 048

REACTIONS (1)
  - HAEMORRHAGE [None]
